FAERS Safety Report 5397116-2 (Version None)
Quarter: 2007Q3

REPORT INFORMATION
  Report Type: 
  Country: None (occurrence: None)
  Receive Date: 20070723
  Receipt Date: 20070716
  Transmission Date: 20080115
  Serious: Yes (Death, Hospitalization)
  Sender: FDA-Public Use
  Company Number: S07-USA-02592-01

PATIENT
  Age: 84 Year
  Sex: Male

DRUGS (8)
  1. NAMENDA [Suspect]
     Indication: DEMENTIA ALZHEIMER'S TYPE
     Dates: start: 20061201, end: 20070601
  2. SEROQUEL [Concomitant]
  3. SYNTHROID [Concomitant]
  4. PROSCAR [Concomitant]
  5. ACE INHIBITOR [Concomitant]
  6. VITAMINS NOS [Concomitant]
  7. EYE DROPS (NOS) [Concomitant]
  8. ASPIRIN [Concomitant]

REACTIONS (10)
  - ABASIA [None]
  - ACTIVITIES OF DAILY LIVING IMPAIRED [None]
  - BLOOD POTASSIUM DECREASED [None]
  - CONDITION AGGRAVATED [None]
  - CONTUSION [None]
  - DEMENTIA ALZHEIMER'S TYPE [None]
  - FALL [None]
  - FEEDING DISORDER [None]
  - STARVATION [None]
  - WRIST FRACTURE [None]
